FAERS Safety Report 23662610 (Version 1)
Quarter: 2024Q1

REPORT INFORMATION
  Report Type: Spontaneous
  Country: CA (occurrence: CA)
  Receive Date: 20240322
  Receipt Date: 20240322
  Transmission Date: 20240409
  Serious: No
  Sender: FDA-Public Use
  Company Number: CA-PFIZER INC-202400054238

PATIENT
  Age: 71 Year
  Sex: Female

DRUGS (1)
  1. PREMARIN [Suspect]
     Active Substance: ESTROGENS, CONJUGATED
     Dosage: TWICE A WEEK, MONDAY-FRIDAY

REACTIONS (4)
  - Device use error [Unknown]
  - Poor quality device used [Unknown]
  - Product contamination [Unknown]
  - Product dose omission in error [Unknown]
